FAERS Safety Report 9452839 (Version 2)
Quarter: 2013Q3

REPORT INFORMATION
  Report Type: Spontaneous
  Country: TH (occurrence: TH)
  Receive Date: 20130812
  Receipt Date: 20130822
  Transmission Date: 20140515
  Serious: Yes (Death)
  Sender: FDA-Public Use
  Company Number: TH-ASTRAZENECA-2013SE62447

PATIENT
  Age: 39 Year
  Sex: Male

DRUGS (2)
  1. SEROQUEL [Suspect]
     Indication: SLEEP DISORDER
     Route: 048
  2. CIPROBAY [Concomitant]
     Indication: INFECTION

REACTIONS (1)
  - Ventricular tachycardia [Fatal]
